FAERS Safety Report 6108922-0 (Version None)
Quarter: 2009Q1

REPORT INFORMATION
  Report Type: 
  Country: None (occurrence: None)
  Receive Date: 20090310
  Receipt Date: 20090305
  Transmission Date: 20090719
  Serious: Yes (Other)
  Sender: FDA-Public Use
  Company Number: FR-WYE-G02835808

PATIENT
  Sex: Male

DRUGS (3)
  1. TORISEL [Suspect]
     Dosage: 25 MG EVERY 1 CYC
     Route: 042
     Dates: start: 20080327, end: 20081201
  2. TORISEL [Suspect]
     Dosage: UNKNOWN
     Route: 042
     Dates: start: 20090101
  3. ASPIRIN [Concomitant]
     Dosage: UNKNOWN

REACTIONS (2)
  - CHEST PAIN [None]
  - COUGH [None]
